FAERS Safety Report 19821585 (Version 1)
Quarter: 2021Q3

REPORT INFORMATION
  Report Type: Report from Study
  Country: BR (occurrence: BR)
  Receive Date: 20210913
  Receipt Date: 20210913
  Transmission Date: 20211014
  Serious: Yes (Death, Hospitalization)
  Sender: FDA-Public Use
  Company Number: BR-PFIZER INC-202101181294

PATIENT

DRUGS (4)
  1. CLINDAMYCIN PHOSPHATE. [Suspect]
     Active Substance: CLINDAMYCIN PHOSPHATE
     Indication: SERRATIA INFECTION
     Dosage: UNK
  2. FOSFOMYCIN [Suspect]
     Active Substance: FOSFOMYCIN
     Indication: SERRATIA INFECTION
     Dosage: UNK
  3. CIPROFLOXACIN. [Suspect]
     Active Substance: CIPROFLOXACIN
     Indication: SERRATIA INFECTION
     Dosage: UNK
  4. TIGECYCLINE. [Suspect]
     Active Substance: TIGECYCLINE
     Indication: SERRATIA INFECTION
     Dosage: UNK

REACTIONS (1)
  - Drug ineffective [Fatal]
